FAERS Safety Report 7821153-9 (Version None)
Quarter: 2011Q4

REPORT INFORMATION
  Report Type: 
  Country: None (occurrence: None)
  Receive Date: 20111018
  Receipt Date: 20110223
  Transmission Date: 20120403
  Serious: No
  Sender: FDA-Public Use
  Company Number: US-ASTRAZENECA-2011SE03230

PATIENT
  Age: 77 Year
  Sex: Female

DRUGS (3)
  1. SYMBICORT [Suspect]
     Dosage: 160/4.5 2 PUFFS BID
     Route: 055
     Dates: start: 20100401
  2. XOPENEX [Concomitant]
     Indication: RESPIRATORY THERAPY
     Dosage: PNR
  3. IPRATROPIUM BROMIDE [Concomitant]
     Indication: RESPIRATORY THERAPY
     Dosage: PNR

REACTIONS (2)
  - DYSPNOEA [None]
  - DRUG INEFFECTIVE [None]
